FAERS Safety Report 8712218 (Version 2)
Quarter: 2013Q1

REPORT INFORMATION
  Report Type: Spontaneous
  Country: BR (occurrence: BR)
  Receive Date: 20120807
  Receipt Date: 20130116
  Transmission Date: 20140127
  Serious: No
  Sender: FDA-Public Use
  Company Number: BR-ROCHE-1097547

PATIENT
  Sex: Female

DRUGS (11)
  1. XOLAIR [Suspect]
     Indication: OXYGEN CONSUMPTION DECREASED
     Dosage: 2 AMPULES EVERY 15 DAYS
     Route: 058
     Dates: start: 201204
  2. BAMIFIX [Concomitant]
     Route: 065
  3. BAMIFIX [Concomitant]
     Route: 065
  4. ALENIA (BRAZIL) [Concomitant]
     Route: 065
  5. ALENIA (BRAZIL) [Concomitant]
     Route: 065
  6. ALENIA (BRAZIL) [Concomitant]
     Route: 065
  7. LABIRIN [Concomitant]
     Route: 065
  8. LABIRIN [Concomitant]
     Route: 065
  9. FUROSEMIDE [Concomitant]
     Route: 065
  10. METFORMIN [Concomitant]
     Route: 065
  11. METFORMIN [Concomitant]
     Route: 065

REACTIONS (1)
  - Hypoglycaemia [Not Recovered/Not Resolved]
